FAERS Safety Report 7984770-1 (Version None)
Quarter: 2011Q4

REPORT INFORMATION
  Report Type: 
  Country: None (occurrence: None)
  Receive Date: 20111216
  Receipt Date: 20111027
  Transmission Date: 20120403
  Serious: No
  Sender: FDA-Public Use
  Company Number: US-ALLERGAN-0914870US

PATIENT
  Age: 57 Year
  Sex: Female
  Weight: 100 kg

DRUGS (7)
  1. PROTONICS [Concomitant]
     Dosage: UNK
  2. HORMONES AND RELATED AGENTS [Concomitant]
     Indication: HORMONE REPLACEMENT THERAPY
     Dosage: UNK
  3. BOTOX COSMETIC [Concomitant]
     Dosage: UNK
  4. LATISSE [Suspect]
     Indication: GROWTH OF EYELASHES
     Dosage: 1 GTT, QPM
     Dates: end: 20100101
  5. VOLTAREN [Concomitant]
     Dosage: UNK
  6. LATISSE [Suspect]
     Dosage: 1 GTT, QHS
     Route: 061
  7. LISINOPRIL [Concomitant]
     Dosage: UNK

REACTIONS (1)
  - MADAROSIS [None]
